FAERS Safety Report 15660651 (Version 1)
Quarter: 2018Q4

REPORT INFORMATION
  Report Type: Spontaneous
  Country: US (occurrence: US)
  Receive Date: 20181116
  Receipt Date: 20181116
  Transmission Date: 20190205
  Serious: No
  Sender: FDA-Public Use
  Company Number: None

PATIENT
  Age: 68 Year
  Sex: Male
  Weight: 74.84 kg

DRUGS (1)
  1. GUAIATUSSIN AC [Suspect]
     Active Substance: CODEINE PHOSPHATE\GUAIFENESIN
     Indication: PNEUMONIA
     Dosage: ?          QUANTITY:100 MG MILLIGRAM(S);OTHER FREQUENCY:5ML  EVERY 4 HRS;?
     Route: 048
     Dates: start: 20181006, end: 20181006

REACTIONS (1)
  - Product taste abnormal [None]

NARRATIVE: CASE EVENT DATE: 20181006
